FAERS Safety Report 5045313-8 (Version None)
Quarter: 2006Q3

REPORT INFORMATION
  Report Type: 
  Country: None (occurrence: None)
  Receive Date: 20060707
  Receipt Date: 20060630
  Transmission Date: 20061208
  Serious: Yes (Life-Threatening, Hospitalization, Other)
  Sender: FDA-Public Use
  Company Number: US-MERCK-0607USA00106

PATIENT
  Sex: Female

DRUGS (7)
  1. FOSAMAX [Suspect]
     Indication: OSTEOPOROSIS
     Route: 048
  2. CALCIUM (UNSPECIFIED) [Concomitant]
     Route: 065
  3. COUMADIN [Suspect]
     Route: 065
  4. COUMADIN [Suspect]
     Route: 065
     Dates: start: 20060101
  5. PROTONIX [Concomitant]
     Route: 065
  6. ASPIRIN [Suspect]
     Route: 065
     Dates: start: 20060101
  7. ASPIRIN [Suspect]
     Route: 065

REACTIONS (1)
  - GASTROINTESTINAL ULCER HAEMORRHAGE [None]
